FAERS Safety Report 26046124 (Version 4)
Quarter: 2025Q4

REPORT INFORMATION
  Report Type: Report from Study
  Country: US (occurrence: None)
  Receive Date: 20251114
  Receipt Date: 20251231
  Transmission Date: 20260117
  Serious: Yes (Hospitalization, Other)
  Sender: UCB
  Company Number: US-UCBSA-2025059526

PATIENT
  Weight: 56.7 kg

DRUGS (5)
  1. FENFLURAMINE [Suspect]
     Active Substance: FENFLURAMINE
     Indication: Lennox-Gastaut syndrome
     Dosage: 5.9 MILLILITER, 2X/DAY (BID)
  2. FENFLURAMINE [Suspect]
     Active Substance: FENFLURAMINE
     Dosage: 2.5 MILLILITER, ONCE DAILY (QD)
  3. FENFLURAMINE [Suspect]
     Active Substance: FENFLURAMINE
     Dosage: 4.9 MG/KG/DAY
  4. FENFLURAMINE [Suspect]
     Active Substance: FENFLURAMINE
     Dosage: 4.9 MILLILITER, 2X/DAY (BID)
  5. FENFLURAMINE [Suspect]
     Active Substance: FENFLURAMINE
     Dosage: 4.9 MILLILITER, 2X/DAY (BID)

REACTIONS (6)
  - Pericardial effusion [Unknown]
  - Mitral valve incompetence [Not Recovered/Not Resolved]
  - Status epilepticus [Not Recovered/Not Resolved]
  - Mitral valve prolapse [Unknown]
  - Drug ineffective [Unknown]
  - Off label use [Unknown]
